FAERS Safety Report 10885647 (Version 1)
Quarter: 2015Q1

REPORT INFORMATION
  Report Type: Spontaneous
  Country: US (occurrence: None)
  Receive Date: 20150227
  Receipt Date: 20150227
  Transmission Date: 20150721
  Serious: Yes (Life-Threatening)
  Sender: FDA-Public Use
  Company Number: FK201500905

PATIENT
  Age: 06 Month
  Sex: Male
  Weight: 7.2 kg

DRUGS (3)
  1. MORPHINE (MORPHINE) (MORPHINE) [Suspect]
     Active Substance: MORPHINE
     Indication: SURGERY
     Route: 008
  2. BUTORPHANOL [Suspect]
     Active Substance: BUTORPHANOL
     Indication: SURGERY
     Route: 008
  3. MORPHINE (MORPHINE) (MORPHINE) [Suspect]
     Active Substance: MORPHINE
     Indication: POSTOPERATIVE CARE
     Route: 008

REACTIONS (2)
  - Airway complication of anaesthesia [None]
  - Sedation [None]
